FAERS Safety Report 9344583 (Version 1)
Quarter: 2013Q2

REPORT INFORMATION
  Report Type: Spontaneous
  Country: US (occurrence: None)
  Receive Date: 20130611
  Receipt Date: 20130611
  Transmission Date: 20140414
  Serious: Yes (Other)
  Sender: FDA-Public Use
  Company Number: None

PATIENT
  Age: 61 Year
  Sex: Male

DRUGS (3)
  1. METHOTREXATE [Suspect]
     Indication: RHEUMATOID ARTHRITIS
     Route: 048
     Dates: start: 20120705, end: 20121107
  2. METHOTREXATE [Suspect]
     Indication: IRITIS
     Route: 048
     Dates: start: 20120705, end: 20121107
  3. METHOTREXATE [Suspect]
     Indication: UVEITIS
     Route: 048
     Dates: start: 20120705, end: 20121107

REACTIONS (4)
  - Adenocarcinoma [None]
  - Polyp [None]
  - Cough [None]
  - Adenoma benign [None]
